FAERS Safety Report 6723168-0 (Version None)
Quarter: 2010Q2

REPORT INFORMATION
  Report Type: 
  Country: None (occurrence: None)
  Receive Date: 20100513
  Receipt Date: 20100507
  Transmission Date: 20101027
  Serious: Yes (Hospitalization)
  Sender: FDA-Public Use
  Company Number: FR-JNJFOC-20100502015

PATIENT
  Sex: Male

DRUGS (18)
  1. DURAGESIC-100 [Suspect]
     Indication: MYALGIA
     Route: 062
  2. SPASFON [Concomitant]
  3. NEXIUM [Concomitant]
     Route: 065
  4. OMEXEL [Concomitant]
     Route: 065
  5. SPAGULAX [Concomitant]
     Route: 065
  6. LYRICA [Concomitant]
     Route: 065
  7. ACUPAN [Concomitant]
     Route: 065
  8. DOLIPRANE [Concomitant]
     Route: 065
  9. TERCIAN [Concomitant]
     Route: 065
  10. NOCTAMIDE [Concomitant]
     Route: 065
  11. EFFEXOR [Concomitant]
     Route: 065
  12. IRBESARTAN [Concomitant]
     Route: 065
  13. CRESTOR [Concomitant]
     Route: 065
  14. DEDROGYL [Concomitant]
     Route: 065
  15. MOVICOL [Concomitant]
     Route: 065
  16. EDUCTYL [Concomitant]
     Route: 065
  17. RHINOFLUIMUCIL [Concomitant]
     Route: 065
  18. AMLOR [Concomitant]
     Route: 065

REACTIONS (5)
  - COMA [None]
  - LUNG DISORDER [None]
  - MEDICATION ERROR [None]
  - RENAL FAILURE ACUTE [None]
  - RHABDOMYOLYSIS [None]
